FAERS Safety Report 8901800 (Version 1)
Quarter: 2012Q4

REPORT INFORMATION
  Report Type: Spontaneous
  Country: DE (occurrence: None)
  Receive Date: 20121105
  Receipt Date: 20121105
  Transmission Date: 20130627
  Serious: Yes (Other)
  Sender: FDA-Public Use
  Company Number: 2008EU002057

PATIENT

DRUGS (1)
  1. TACROLIMUS OINTMENT [Suspect]
     Indication: DERMATITIS ATOPIC
     Route: 061

REACTIONS (1)
  - Congenital naevus [None]
